FAERS Safety Report 12732171 (Version 1)
Quarter: 2016Q3

REPORT INFORMATION
  Report Type: Spontaneous
  Country: US (occurrence: US)
  Receive Date: 20160912
  Receipt Date: 20160912
  Transmission Date: 20161109
  Serious: Yes (Hospitalization)
  Sender: FDA-Public Use
  Company Number: US-JNJFOC-20160611584

PATIENT
  Age: 45 Year
  Sex: Female
  Weight: 88.91 kg

DRUGS (3)
  1. ECOTRIN [Suspect]
     Active Substance: ASPIRIN
     Indication: PRODUCT USED FOR UNKNOWN INDICATION
     Route: 065
  2. XARELTO [Suspect]
     Active Substance: RIVAROXABAN
     Indication: DEEP VEIN THROMBOSIS
     Route: 048
     Dates: start: 20150212, end: 20150331
  3. XARELTO [Suspect]
     Active Substance: RIVAROXABAN
     Indication: PULMONARY EMBOLISM
     Route: 048
     Dates: start: 20150212, end: 20150331

REACTIONS (4)
  - Epistaxis [Recovering/Resolving]
  - Intestinal haemorrhage [Recovering/Resolving]
  - Haematuria [Recovering/Resolving]
  - Stoma site haemorrhage [Recovering/Resolving]

NARRATIVE: CASE EVENT DATE: 2015
